FAERS Safety Report 8157005-7 (Version None)
Quarter: 2012Q1

REPORT INFORMATION
  Report Type: 
  Country: None (occurrence: None)
  Receive Date: 20120222
  Receipt Date: 20120217
  Transmission Date: 20120608
  Serious: Yes (Hospitalization, Disabling, Other)
  Sender: FDA-Public Use
  Company Number: GB-MERCK-1202GBR00112

PATIENT
  Age: 88 Year
  Sex: Female

DRUGS (2)
  1. INVANZ [Suspect]
     Indication: INTRASPINAL ABSCESS
     Route: 042
     Dates: start: 20120103, end: 20120130
  2. AMOXICILLIN [Concomitant]
     Route: 042

REACTIONS (4)
  - HALLUCINATION [None]
  - CONFUSIONAL STATE [None]
  - DEPRESSED LEVEL OF CONSCIOUSNESS [None]
  - SOMNOLENCE [None]
